FAERS Safety Report 4751158-6 (Version None)
Quarter: 2005Q3

REPORT INFORMATION
  Report Type: 
  Country: None (occurrence: None)
  Receive Date: 20050822
  Receipt Date: 20050808
  Transmission Date: 20060218
  Serious: Yes (Other)
  Sender: FDA-Public Use
  Company Number: 2005099291

PATIENT
  Sex: Female
  Weight: 53.5244 kg

DRUGS (13)
  1. NEURONTIN [Suspect]
     Indication: NEURALGIA
     Dosage: ORAL
     Route: 048
     Dates: start: 20000101
  2. CIPROFLOXACIN [Suspect]
     Indication: KIDNEY INFECTION
  3. MACROBID [Suspect]
     Indication: KIDNEY INFECTION
  4. ANTIHYPERTENSIVES (ANTIHYPERTENSIVES) [Suspect]
     Indication: HYPERTENSION
     Dates: end: 20050101
  5. OXYCONTIN (OXYCODNE HYDROCHLORIDE) [Concomitant]
  6. PERCOCET [Concomitant]
  7. ATIVAN [Concomitant]
  8. PREVACID [Concomitant]
  9. VOLTAREN [Concomitant]
  10. ACETYLSALICYLIC ACID SRT [Concomitant]
  11. CALCIUM (CALCIUM) [Concomitant]
  12. EVISTA [Concomitant]
  13. ZETIA [Concomitant]

REACTIONS (11)
  - BLOOD PRESSURE DECREASED [None]
  - BODY HEIGHT DECREASED [None]
  - CYSTITIS [None]
  - DRUG RESISTANCE [None]
  - HYPOAESTHESIA [None]
  - INCORRECT DOSE ADMINISTERED [None]
  - KIDNEY INFECTION [None]
  - PERFORMANCE STATUS DECREASED [None]
  - SCAR [None]
  - URINARY TRACT INFECTION [None]
  - UTERINE OPERATION [None]
